FAERS Safety Report 18840026 (Version 2)
Quarter: 2021Q2

REPORT INFORMATION
  Report Type: Spontaneous
  Country: US (occurrence: US)
  Receive Date: 20210203
  Receipt Date: 20210401
  Transmission Date: 20210717
  Serious: Yes (Hospitalization, Other)
  Sender: FDA-Public Use
  Company Number: US-GILEAD-2021-0515195

PATIENT
  Age: 60 Year
  Sex: Male
  Weight: 95.24 kg

DRUGS (2)
  1. YESCARTA [Suspect]
     Active Substance: AXICABTAGENE CILOLEUCEL
     Indication: NON-HODGKIN^S LYMPHOMA
     Dosage: UNK
     Route: 042
     Dates: start: 20190716, end: 20190716
  2. BACTRIM [Suspect]
     Active Substance: SULFAMETHOXAZOLE\TRIMETHOPRIM
     Indication: PRODUCT USED FOR UNKNOWN INDICATION
     Route: 065

REACTIONS (11)
  - Hypotonia [Recovered/Resolved]
  - Fatigue [Recovering/Resolving]
  - Feeling cold [Recovered/Resolved]
  - Emotional distress [Recovered/Resolved]
  - Cognitive disorder [Recovering/Resolving]
  - Dysstasia [Recovering/Resolving]
  - Dysgeusia [Recovered/Resolved]
  - Skin odour abnormal [Recovered/Resolved]
  - Abnormal dreams [Recovering/Resolving]
  - Alopecia [Recovering/Resolving]
  - Eating disorder [Recovered/Resolved]
